FAERS Safety Report 24985569 (Version 3)
Quarter: 2025Q1

REPORT INFORMATION
  Report Type: Spontaneous
  Country: US (occurrence: US)
  Receive Date: 20250219
  Receipt Date: 20250326
  Transmission Date: 20250408
  Serious: Yes (Other)
  Sender: BLUEPRINT MEDICINES
  Company Number: US-Blueprint Medicines Corporation-2025-AER-00311

PATIENT
  Age: 81 Year
  Sex: Female

DRUGS (3)
  1. AYVAKIT [Suspect]
     Active Substance: AVAPRITINIB
     Indication: Systemic mastocytosis
     Route: 065
  2. AYVAKIT [Suspect]
     Active Substance: AVAPRITINIB
     Route: 065
     Dates: start: 20250213, end: 202503
  3. HYDROXYUREA [Concomitant]
     Active Substance: HYDROXYUREA
     Indication: Product used for unknown indication
     Route: 065

REACTIONS (13)
  - Systemic mastocytosis [Unknown]
  - Condition aggravated [Unknown]
  - Vomiting [Unknown]
  - Feeling abnormal [Unknown]
  - Pruritus [Unknown]
  - Nausea [Unknown]
  - Feeling cold [Unknown]
  - Decreased appetite [Unknown]
  - Platelet count increased [Unknown]
  - Dyspepsia [Unknown]
  - Dizziness [Unknown]
  - Diarrhoea [Unknown]
  - Fatigue [Unknown]
